FAERS Safety Report 16330731 (Version 2)
Quarter: 2019Q2

REPORT INFORMATION
  Report Type: Report from Study
  Country: EG (occurrence: EG)
  Receive Date: 20190520
  Receipt Date: 20190610
  Transmission Date: 20190711
  Serious: Yes (Other)
  Sender: FDA-Public Use
  Company Number: EG-ROCHE-2317293

PATIENT
  Age: 62 Year
  Sex: Female
  Weight: 67 kg

DRUGS (1)
  1. KADCYLA [Suspect]
     Active Substance: ADO-TRASTUZUMAB EMTANSINE
     Indication: BREAST CANCER
     Route: 042
     Dates: start: 20190309

REACTIONS (3)
  - Disease progression [Not Recovered/Not Resolved]
  - Metastases to central nervous system [Unknown]
  - Drug ineffective [Unknown]
